FAERS Safety Report 16808546 (Version 1)
Quarter: 2019Q3

REPORT INFORMATION
  Report Type: Spontaneous
  Country: US (occurrence: US)
  Receive Date: 20190916
  Receipt Date: 20190916
  Transmission Date: 20191005
  Serious: No
  Sender: FDA-Public Use
  Company Number: US-CELGENEUS-USA-20190902349

PATIENT
  Age: 67 Year
  Sex: Female
  Weight: 82 kg

DRUGS (5)
  1. METHOTREXATE. [Concomitant]
     Active Substance: METHOTREXATE
     Indication: PALMOPLANTAR PUSTULOSIS
     Route: 065
     Dates: start: 201906
  2. TALTZ [Concomitant]
     Active Substance: IXEKIZUMAB
     Indication: PALMOPLANTAR PUSTULOSIS
     Route: 065
     Dates: start: 2018, end: 201902
  3. OTEZLA [Suspect]
     Active Substance: APREMILAST
     Indication: PALMOPLANTAR PUSTULOSIS
     Dosage: 60 MILLIGRAM
     Route: 048
     Dates: start: 201906
  4. HUMIRA [Concomitant]
     Active Substance: ADALIMUMAB
     Indication: PALMOPLANTAR PUSTULOSIS
     Route: 065
     Dates: start: 201902, end: 20190531
  5. STELARA [Concomitant]
     Active Substance: USTEKINUMAB
     Indication: PALMOPLANTAR PUSTULOSIS
     Route: 065
     Dates: start: 201802, end: 201806

REACTIONS (1)
  - Rash generalised [Unknown]

NARRATIVE: CASE EVENT DATE: 20190901
